FAERS Safety Report 15966691 (Version 1)
Quarter: 2019Q1

REPORT INFORMATION
  Report Type: Spontaneous
  Country: KR (occurrence: KR)
  Receive Date: 20190215
  Receipt Date: 20190215
  Transmission Date: 20190418
  Serious: Yes (Other)
  Sender: FDA-Public Use
  Company Number: KR-ABBVIE-18S-090-2605585-00

PATIENT
  Age: 1 Month
  Sex: Female
  Weight: 1.76 kg

DRUGS (1)
  1. SYNAGIS [Suspect]
     Active Substance: PALIVIZUMAB
     Indication: PRODUCT USED FOR UNKNOWN INDICATION
     Route: 050

REACTIONS (1)
  - Apnoea [Unknown]

NARRATIVE: CASE EVENT DATE: 20181222
